FAERS Safety Report 17285122 (Version 1)
Quarter: 2020Q1

REPORT INFORMATION
  Report Type: Spontaneous
  Country: US (occurrence: US)
  Receive Date: 20200117
  Receipt Date: 20200117
  Transmission Date: 20200409
  Serious: No
  Sender: FDA-Public Use
  Company Number: US-TARO-2019TAR00390

PATIENT
  Age: 61 Year
  Sex: Female
  Weight: 51.7 kg

DRUGS (3)
  1. CLOTRIMAZOLE VAGINAL CREAM USP 1% 7 DAY [Suspect]
     Active Substance: CLOTRIMAZOLE
     Indication: VULVOVAGINAL MYCOTIC INFECTION
     Dosage: 1 APPLICATORFUL, 1X/DAY AT NIGHT
     Route: 067
     Dates: start: 20190430, end: 20190507
  2. UNSPECIFIED HORMONE THERAPY [Concomitant]
     Active Substance: UNSPECIFIED INGREDIENT
  3. UNSPECIFIED SUPPLEMENTS [Concomitant]

REACTIONS (5)
  - Underdose [Recovered/Resolved]
  - Product quality issue [Recovered/Resolved]
  - Malabsorption [Recovered/Resolved]
  - Incorrect product administration duration [Recovered/Resolved]
  - Vaginal discharge [Not Recovered/Not Resolved]

NARRATIVE: CASE EVENT DATE: 20190430
